FAERS Safety Report 8343518-1 (Version None)
Quarter: 2012Q2

REPORT INFORMATION
  Report Type: 
  Country: None (occurrence: None)
  Receive Date: 20120508
  Receipt Date: 20120507
  Transmission Date: 20120825
  Serious: Yes (Other)
  Sender: FDA-Public Use
  Company Number: PHEH2008US08907

PATIENT
  Sex: Female

DRUGS (30)
  1. MEGACE [Concomitant]
  2. NOLVADEX [Concomitant]
     Dosage: 10 MG, UNK
  3. ZYRTEC [Concomitant]
  4. FLAGYL [Concomitant]
     Dosage: 500 MG, QID
  5. ARIMIDEX [Concomitant]
  6. FLONASE [Concomitant]
  7. ZITHROMAX [Concomitant]
  8. AVELOX [Concomitant]
  9. PHENERGAN [Concomitant]
  10. BACTRIM [Concomitant]
  11. TAXOTERE [Concomitant]
  12. PAXIL [Concomitant]
  13. AREDIA [Suspect]
     Route: 042
     Dates: start: 19980818, end: 20011114
  14. PERCOCET [Concomitant]
  15. NEXIUM [Concomitant]
  16. ZOFRAN [Concomitant]
  17. NEURONTIN [Concomitant]
  18. DURAGESIC-100 [Concomitant]
  19. AMBIEN [Concomitant]
  20. DECADRON [Concomitant]
  21. FASLODEX [Concomitant]
  22. VIOXX [Concomitant]
  23. METOPROLOL TARTRATE [Concomitant]
  24. FULVESTRANT [Concomitant]
  25. LEVAQUIN [Concomitant]
  26. ZOMETA [Suspect]
     Dates: start: 20011114, end: 20070113
  27. RADIATION [Concomitant]
  28. ALDACTONE [Concomitant]
  29. LASIX [Concomitant]
  30. KYTRIL [Concomitant]

REACTIONS (35)
  - METASTASES TO BONE [None]
  - DYSPNOEA [None]
  - ARTHRITIS [None]
  - HEPATIC CYST [None]
  - DISABILITY [None]
  - BONE DISORDER [None]
  - GINGIVAL SWELLING [None]
  - LYMPHADENOPATHY [None]
  - METASTASES TO LUNG [None]
  - METASTASES TO LIVER [None]
  - ISCHAEMIA [None]
  - HYPERTENSION [None]
  - ARTHROPATHY [None]
  - PULMONARY FIBROSIS [None]
  - OSTEONECROSIS OF JAW [None]
  - OSTEOMYELITIS [None]
  - INFARCTION [None]
  - INJURY [None]
  - TOOTH ABSCESS [None]
  - NEUROPATHY PERIPHERAL [None]
  - PLEURAL EFFUSION [None]
  - RENAL CYST [None]
  - SINUSITIS [None]
  - CARDIAC FAILURE CONGESTIVE [None]
  - PULMONARY CALCIFICATION [None]
  - HIATUS HERNIA [None]
  - ANXIETY [None]
  - ANHEDONIA [None]
  - SINUS HEADACHE [None]
  - OSTEOPENIA [None]
  - RHINORRHOEA [None]
  - PAIN [None]
  - THROMBOCYTOPENIA [None]
  - CHRONIC OBSTRUCTIVE PULMONARY DISEASE [None]
  - NASAL SEPTUM DEVIATION [None]
